FAERS Safety Report 24719548 (Version 1)
Quarter: 2024Q4

REPORT INFORMATION
  Report Type: Spontaneous
  Country: MX (occurrence: MX)
  Receive Date: 20241211
  Receipt Date: 20241211
  Transmission Date: 20250114
  Serious: Yes (Other)
  Sender: NOVO NORDISK
  Company Number: MX-NOVOPROD-1290905

PATIENT
  Age: 72 Year
  Sex: Female
  Weight: 65 kg

DRUGS (3)
  1. RYZODEG 70/30 [Suspect]
     Active Substance: INSULIN ASPART\INSULIN DEGLUDEC
     Indication: Type 2 diabetes mellitus
     Dosage: 34 IU, QD (20 IU IN THE MORNING AND 14 IU AT NIGHT)
     Dates: start: 202303
  2. INSULIN GLULISINE [Concomitant]
     Active Substance: INSULIN GLULISINE
     Indication: Product used for unknown indication
     Dosage: BETWEEN 10 AND 15UNITS FROM 19 TO 23 IN THE MORNING. 10UNITS AT LUNCH TIME AND 12UNITS AT DINNER
     Route: 058
  3. XIGDUO XR [Concomitant]
     Active Substance: DAPAGLIFLOZIN PROPANEDIOL\METFORMIN HYDROCHLORIDE
     Indication: Product used for unknown indication
     Dosage: ONE IN THE MORNING AND ONE AT NIGHT. 5MG/1000MG

REACTIONS (2)
  - Blood glucose increased [Unknown]
  - Device malfunction [Unknown]
